FAERS Safety Report 5134885-0 (Version None)
Quarter: 2006Q4

REPORT INFORMATION
  Report Type: 
  Country: None (occurrence: None)
  Receive Date: 20061025
  Receipt Date: 20061016
  Transmission Date: 20070319
  Serious: Yes (Hospitalization)
  Sender: FDA-Public Use
  Company Number: GR-NOVOPROD-257859

PATIENT
  Age: 55 Year
  Sex: Male

DRUGS (2)
  1. NOVOLOG MIX 70/30 [Suspect]
     Indication: DIABETES MELLITUS
     Dates: start: 20001107, end: 20061016
  2. RENITEC                            /00574901/ [Concomitant]
     Indication: HYPERTENSION

REACTIONS (3)
  - RASH [None]
  - RASH PRURITIC [None]
  - SUBCUTANEOUS NODULE [None]
